FAERS Safety Report 6216273-9 (Version None)
Quarter: 2009Q2

REPORT INFORMATION
  Report Type: 
  Country: None (occurrence: None)
  Receive Date: 20090605
  Receipt Date: 20090604
  Transmission Date: 20091009
  Serious: Yes (Hospitalization)
  Sender: FDA-Public Use
  Company Number: B0576948A

PATIENT
  Age: 88 Year
  Sex: Female

DRUGS (1)
  1. VALACYCLOVIR HCL [Suspect]
     Dosage: 1000MG THREE TIMES PER DAY
     Route: 048
     Dates: start: 20090219, end: 20090311

REACTIONS (3)
  - BACTERIAL PYELONEPHRITIS [None]
  - RENAL FAILURE ACUTE [None]
  - TRANSAMINASES INCREASED [None]
